FAERS Safety Report 7463257-9 (Version None)
Quarter: 2011Q2

REPORT INFORMATION
  Report Type: 
  Country: None (occurrence: None)
  Receive Date: 20110506
  Receipt Date: 20110425
  Transmission Date: 20111010
  Serious: Yes (Disabling)
  Sender: FDA-Public Use
  Company Number: IR-ROCHE-774541

PATIENT
  Age: 50 Year
  Sex: Female
  Weight: 86 kg

DRUGS (1)
  1. HERCEPTIN [Suspect]
     Route: 042
     Dates: start: 20100901

REACTIONS (1)
  - DEAFNESS NEUROSENSORY [None]
